FAERS Safety Report 8763677 (Version 1)
Quarter: 2012Q4

REPORT INFORMATION
  Report Type: Spontaneous
  Country: US (occurrence: None)
  Receive Date: 20120831
  Receipt Date: 20120831
  Transmission Date: 20130627
  Serious: Yes (Other)
  Sender: FDA-Public Use
  Company Number: None

PATIENT
  Age: 29 Year
  Sex: Female
  Weight: 58.06 kg

DRUGS (2)
  1. HYDROCODONE/ACETAMINOPHEN [Suspect]
     Indication: PAIN
     Dosage: 1 TABLET
     Route: 048
     Dates: start: 20120815, end: 20120828
  2. HYDROCODONE/ACETAMINOPHEN [Suspect]
     Indication: FOOT FRACTURE
     Dosage: 1 TABLET
     Route: 048
     Dates: start: 20120815, end: 20120828

REACTIONS (2)
  - Rash pruritic [None]
  - Rash erythematous [None]
